FAERS Safety Report 5613923-2 (Version None)
Quarter: 2008Q1

REPORT INFORMATION
  Report Type: 
  Country: None (occurrence: None)
  Receive Date: 20080205
  Receipt Date: 20080125
  Transmission Date: 20080703
  Serious: Yes (Hospitalization)
  Sender: FDA-Public Use
  Company Number: IT-JNJFOC-20080106151

PATIENT
  Sex: Female

DRUGS (7)
  1. LEVOFLOXACIN [Suspect]
     Indication: DRUG USE FOR UNKNOWN INDICATION
     Route: 065
  2. PREDNISONE TAB [Concomitant]
     Route: 065
  3. RANIDIL [Concomitant]
     Route: 065
  4. CREON [Concomitant]
     Route: 065
  5. FLUIMUCIL [Concomitant]
     Route: 065
  6. VITAMIN CAP [Concomitant]
     Route: 065
  7. VENTOLIN [Concomitant]
     Route: 065

REACTIONS (4)
  - DYSPNOEA [None]
  - OFF LABEL USE [None]
  - PRURITUS [None]
  - SUFFOCATION FEELING [None]
